FAERS Safety Report 7361159-X (Version None)
Quarter: 2011Q1

REPORT INFORMATION
  Report Type: 
  Country: None (occurrence: None)
  Receive Date: 20110315
  Receipt Date: 20110315
  Transmission Date: 20110831
  Serious: Yes (Hospitalization, Disabling, Other)
  Sender: FDA-Public Use
  Company Number: None

PATIENT
  Sex: Male
  Weight: 9.8 kg

DRUGS (3)
  1. PREVACID [Concomitant]
  2. LITTLE TUMMIES LAXATIVE DROPS CONSULT DOCTOR FOR UNDER 2 LITTLE REMEDI [Suspect]
     Indication: CONGENITAL MEGACOLON
     Dosage: 1.5 ML EVERY NIGHT PO
     Route: 048
     Dates: start: 20101113, end: 20110221
  3. LITTLE TUMMIES LAXATIVE DROPS CONSULT DOCTOR FOR UNDER 2 LITTLE REMEDI [Suspect]
     Indication: CONSTIPATION
     Dosage: 1.5 ML EVERY NIGHT PO
     Route: 048
     Dates: start: 20101113, end: 20110221

REACTIONS (7)
  - CHEMICAL INJURY [None]
  - WEIGHT INCREASED [None]
  - DYSPEPSIA [None]
  - ABDOMINAL DISTENSION [None]
  - DERMATITIS DIAPER [None]
  - MALAISE [None]
  - SKIN EXFOLIATION [None]
